FAERS Safety Report 5868209-8 (Version None)
Quarter: 2008Q3

REPORT INFORMATION
  Report Type: 
  Country: None (occurrence: None)
  Receive Date: 20080902
  Receipt Date: 20080827
  Transmission Date: 20090109
  Serious: Yes (Other)
  Sender: FDA-Public Use
  Company Number: US-ABBOTT-08P-163-0472724-00

PATIENT
  Sex: Male
  Weight: 68.1 kg

DRUGS (14)
  1. HUMIRA [Suspect]
     Indication: ARTHRITIS
     Route: 058
     Dates: start: 20070601, end: 20070801
  2. HUMIRA [Suspect]
     Indication: CROHN'S DISEASE
     Route: 058
     Dates: start: 20080513
  3. AZATHIOPRINE [Concomitant]
     Indication: CROHN'S DISEASE
     Route: 048
     Dates: start: 20040101
  4. CYCLOBENZAPRINE HCL [Concomitant]
     Indication: MUSCLE RELAXANT THERAPY
     Route: 048
     Dates: start: 20040101
  5. TRAMADOL HCL [Concomitant]
     Indication: PAIN
     Route: 048
     Dates: start: 20080807
  6. CLONAZEPAM [Concomitant]
     Indication: RESTLESS LEGS SYNDROME
     Route: 048
     Dates: start: 20080506
  7. CLONAZEPAM [Concomitant]
     Indication: POOR QUALITY SLEEP
  8. VALPROATE SODIUM [Concomitant]
     Indication: HEADACHE
     Dosage: AT BEDTIME
     Route: 048
     Dates: start: 20080207
  9. RIZATRIPTAN BENZOATE [Concomitant]
     Indication: HEADACHE
     Dosage: WHEN HEADACHE COMES ON
     Route: 048
     Dates: start: 20070101
  10. HYOSCYAMINE SULFATE [Concomitant]
     Indication: IRRITABLE BOWEL SYNDROME
     Dosage: WHEN FLARE-UP
     Route: 048
     Dates: start: 20060101
  11. PHENERGAN HCL [Concomitant]
     Indication: NAUSEA
     Route: 048
     Dates: start: 19880101
  12. PHENERGAN HCL [Concomitant]
     Indication: VOMITING
  13. LORTAB [Concomitant]
     Indication: MYALGIA
     Route: 048
     Dates: start: 20060101
  14. LORTAB [Concomitant]
     Indication: ARTHRALGIA

REACTIONS (19)
  - BONE CYST [None]
  - CENTRAL NERVOUS SYSTEM LESION [None]
  - CYST [None]
  - DEPRESSION [None]
  - EYELID CYST [None]
  - HEADACHE [None]
  - ILL-DEFINED DISORDER [None]
  - IMPAIRED HEALING [None]
  - INTERVERTEBRAL DISC PROTRUSION [None]
  - MEMORY IMPAIRMENT [None]
  - MIGRAINE [None]
  - MULTIPLE SCLEROSIS [None]
  - MUSCLE ATROPHY [None]
  - MUSCULAR WEAKNESS [None]
  - PYREXIA [None]
  - SCAB [None]
  - SKIN CANCER [None]
  - WOUND COMPLICATION [None]
  - WOUND SECRETION [None]
